FAERS Safety Report 9681281 (Version 2)
Quarter: 2013Q4

REPORT INFORMATION
  Report Type: Spontaneous
  Country: CH (occurrence: CH)
  Receive Date: 20131111
  Receipt Date: 20131111
  Transmission Date: 20140711
  Serious: Yes (Other)
  Sender: FDA-Public Use
  Company Number: PHHY2013CH121263

PATIENT
  Age: 72 Year
  Sex: Male

DRUGS (8)
  1. METO ZEROK [Suspect]
     Indication: ENDOCRINE HYPERTENSION
     Dosage: 50 MG, QD
     Route: 048
     Dates: start: 201212
  2. CRESTOR [Suspect]
     Indication: HYPERCHOLESTEROLAEMIA
     Dosage: 5 MG, QD
     Route: 048
     Dates: start: 2011
  3. CRESTOR [Suspect]
     Dosage: 10 MG, QD
     Route: 048
     Dates: start: 201301, end: 20130819
  4. XARELTO [Suspect]
     Indication: ATRIAL FIBRILLATION
     Dosage: 20 MG, QD
     Route: 048
     Dates: start: 201301
  5. INSPRA [Suspect]
     Indication: ENDOCRINE HYPERTENSION
     Dosage: 25 MG, QD
     Route: 048
     Dates: start: 201301
  6. ZANIDIP [Suspect]
     Indication: ENDOCRINE HYPERTENSION
     Dosage: 20 MG, QD
     Route: 048
     Dates: start: 201212
  7. CO-APROVEL [Concomitant]
     Indication: ENDOCRINE HYPERTENSION
     Dosage: 1 DF, QD
     Route: 048
     Dates: start: 2002
  8. PLAVIX [Concomitant]
     Indication: PERIPHERAL ARTERIAL OCCLUSIVE DISEASE
     Dosage: 75 MG, QD
     Route: 048
     Dates: start: 20130922

REACTIONS (2)
  - Serum ferritin increased [Not Recovered/Not Resolved]
  - Hepatic enzyme increased [Not Recovered/Not Resolved]
